FAERS Safety Report 25045553 (Version 1)
Quarter: 2025Q1

REPORT INFORMATION
  Report Type: Spontaneous
  Country: US (occurrence: None)
  Receive Date: 20250305
  Receipt Date: 20250305
  Transmission Date: 20250409
  Serious: Yes (Death, Hospitalization)
  Sender: FDA-CTU
  Company Number: None

PATIENT
  Age: 18 Year
  Sex: Female
  Weight: 45 kg

DRUGS (2)
  1. EPIDIOLEX [Suspect]
     Active Substance: CANNABIDIOL
     Indication: Epilepsy
     Dosage: 3 ML TWICE A DAY ORAL ?
     Route: 048
     Dates: start: 20240903, end: 20250210
  2. AMIKACIN [Suspect]
     Active Substance: AMIKACIN

REACTIONS (5)
  - Cystic fibrosis [None]
  - Quadriplegia [None]
  - Scoliosis [None]
  - Increased bronchial secretion [None]
  - Pneumonia [None]

NARRATIVE: CASE EVENT DATE: 20250210
